FAERS Safety Report 19931061 (Version 1)
Quarter: 2021Q4

REPORT INFORMATION
  Report Type: Report from Study
  Country: None (occurrence: AR)
  Receive Date: 20211008
  Receipt Date: 20211008
  Transmission Date: 20220303
  Serious: Yes (Hospitalization, Other)
  Sender: FDA-Public Use
  Company Number: AR-ABBVIE-21K-007-4110687-00

PATIENT
  Age: 87 Year
  Sex: Male

DRUGS (1)
  1. SKYRIZI [Suspect]
     Active Substance: RISANKIZUMAB-RZAA
     Indication: Psoriasis
     Route: 058
     Dates: start: 20201212

REACTIONS (6)
  - Accident at home [Unknown]
  - Fall [Unknown]
  - Hip fracture [Unknown]
  - Pneumonia [Unknown]
  - Procedural haemorrhage [Unknown]
  - Anaemia postoperative [Unknown]

NARRATIVE: CASE EVENT DATE: 20210901
